FAERS Safety Report 24205875 (Version 2)
Quarter: 2024Q4

REPORT INFORMATION
  Report Type: Spontaneous
  Country: US (occurrence: US)
  Receive Date: 20240813
  Receipt Date: 20241108
  Transmission Date: 20250115
  Serious: No
  Sender: LUNDBECK
  Company Number: US-LUNDBECK-DKLU4001062

PATIENT

DRUGS (1)
  1. VYEPTI [Suspect]
     Active Substance: EPTINEZUMAB-JJMR
     Indication: Migraine
     Dosage: 100 MILLIGRAM
     Route: 041

REACTIONS (1)
  - Migraine [Recovered/Resolved]
